FAERS Safety Report 8867654 (Version 1)
Quarter: 2012Q4

REPORT INFORMATION
  Report Type: 
  Country: US (occurrence: US)
  Receive Date: 20121025
  Receipt Date: 20121025
  Transmission Date: 20130627
  Serious: No
  Sender: FDA-Public Use
  Company Number: US-AMGEN-USASP2012017810

PATIENT
  Age: 72 Year
  Sex: Female

DRUGS (8)
  1. ENBREL [Suspect]
     Indication: PRODUCT USED FOR UNKNOWN INDICATION
     Dosage: 50 mg, UNK
     Route: 058
  2. LEVOTHYROXIN [Concomitant]
     Dosage: 100 mug, UNK
  3. SPIRONOLACTON [Concomitant]
     Dosage: 25 mg, UNK
  4. PREVACID [Concomitant]
     Dosage: 15 mg, UNK
  5. FERROUS SULFATE [Concomitant]
     Dosage: UNK
  6. FORTICAL                           /00751519/ [Concomitant]
     Dosage: UNK
  7. ENULOSE [Concomitant]
     Dosage: 10 g, UNK
  8. CALCIUM [Concomitant]
     Dosage: UNK

REACTIONS (1)
  - Sinusitis fungal [Recovering/Resolving]
